FAERS Safety Report 11096664 (Version 2)
Quarter: 2015Q2

REPORT INFORMATION
  Report Type: Spontaneous
  Country: FR (occurrence: FR)
  Receive Date: 20150507
  Receipt Date: 20150520
  Transmission Date: 20150821
  Serious: Yes (Other)
  Sender: FDA-Public Use
  Company Number: FR-MYLANLABS-2015M1014067

PATIENT

DRUGS (1)
  1. DICLOFENAC BIOGARAN [Suspect]
     Active Substance: DICLOFENAC DIETHYLAMINE
     Indication: FALL

REACTIONS (2)
  - Rash [Not Recovered/Not Resolved]
  - Burning sensation [Not Recovered/Not Resolved]

NARRATIVE: CASE EVENT DATE: 20150330
